FAERS Safety Report 24113087 (Version 1)
Quarter: 2024Q3

REPORT INFORMATION
  Report Type: Spontaneous
  Country: US (occurrence: US)
  Receive Date: 20240719
  Receipt Date: 20240719
  Transmission Date: 20241016
  Serious: No
  Sender: EMD SERONO INC
  Company Number: US-Merck Healthcare KGaA-2024038239

PATIENT
  Age: 61 Year
  Sex: Female

DRUGS (2)
  1. MAVENCLAD [Suspect]
     Active Substance: CLADRIBINE
     Indication: Multiple sclerosis
     Dosage: FIRST YEAR FIRST MONTH THERAPY AT A DOSE OF 2 TABLETS ON DAY ONE AND 1 TABLET ON DAYS 2 TO 5.
     Dates: end: 20240614
  2. MAVENCLAD [Suspect]
     Active Substance: CLADRIBINE
     Dosage: FIRST YEAR SECOND MONTH THERAPY AT A DOSE OF 2 TABLETS ON DAY ONE AND 1 TABLET ON DAYS 2 TO 5.
     Dates: end: 20240711

REACTIONS (2)
  - Myalgia [Unknown]
  - Migraine [Unknown]

NARRATIVE: CASE EVENT DATE: 20240707
